FAERS Safety Report 5971744-5 (Version None)
Quarter: 2008Q4

REPORT INFORMATION
  Report Type: 
  Country: None (occurrence: None)
  Receive Date: 20081126
  Receipt Date: 20081126
  Transmission Date: 20090506
  Serious: Yes (Hospitalization)
  Sender: FDA-Public Use
  Company Number: None

PATIENT
  Age: 57 Year
  Sex: Male

DRUGS (2)
  1. PHENYTOIN [Suspect]
     Indication: CONVULSION
     Dosage: 200 MG TID PO
     Route: 048
     Dates: start: 20021125, end: 20081125
  2. INFLUENZA [Suspect]
     Indication: PROPHYLAXIS
     Dosage: 0.5 ML ONCE IM
     Route: 030
     Dates: start: 20081114, end: 20081114

REACTIONS (5)
  - ASTHENIA [None]
  - ATAXIA [None]
  - DIZZINESS [None]
  - GAIT DISTURBANCE [None]
  - THERAPEUTIC AGENT TOXICITY [None]
